FAERS Safety Report 9205834 (Version 1)
Quarter: 2013Q2

REPORT INFORMATION
  Report Type: Spontaneous
  Country: US (occurrence: None)
  Receive Date: 20130401
  Receipt Date: 20130401
  Transmission Date: 20140414
  Serious: Yes (Death)
  Sender: FDA-Public Use
  Company Number: FK201300948

PATIENT
  Age: 38 Year
  Sex: Female

DRUGS (6)
  1. VALPROATE [Suspect]
     Indication: SCHIZOAFFECTIVE DISORDER
  2. BROMOCRIPTINE [Concomitant]
  3. PERPHENAZINE [Concomitant]
  4. SERTRALINE [Concomitant]
  5. CYCLOBENZAPRINE [Concomitant]
  6. DIPHENHYDRAMINE [Concomitant]

REACTIONS (7)
  - Brain oedema [None]
  - Hyperammonaemic encephalopathy [None]
  - Tachycardia [None]
  - Road traffic accident [None]
  - Brain herniation [None]
  - Hepatomegaly [None]
  - Status epilepticus [None]
